FAERS Safety Report 9018021 (Version 1)
Quarter: 2013Q1

REPORT INFORMATION
  Report Type: Spontaneous
  Country: US (occurrence: US)
  Receive Date: 20130118
  Receipt Date: 20130118
  Transmission Date: 20140127
  Serious: Yes (Other)
  Sender: FDA-Public Use
  Company Number: US-JNJFOC-20130107794

PATIENT
  Age: 43 Year
  Sex: Female

DRUGS (5)
  1. DARUNAVIR [Suspect]
     Indication: ANTIRETROVIRAL THERAPY
     Route: 065
     Dates: start: 200712
  2. RALTEGRAVIR [Suspect]
     Indication: ANTIRETROVIRAL THERAPY
     Route: 065
     Dates: start: 200712
  3. RITONAVIR [Suspect]
     Indication: ANTIRETROVIRAL THERAPY
     Route: 065
     Dates: start: 200712
  4. TENOFOVIR [Suspect]
     Indication: ANTIRETROVIRAL THERAPY
     Route: 065
     Dates: start: 200712
  5. EMTRICITABINE [Suspect]
     Indication: ANTIRETROVIRAL THERAPY
     Route: 065
     Dates: start: 200712

REACTIONS (1)
  - Plasmablastic lymphoma [Unknown]
